FAERS Safety Report 9023852 (Version 4)
Quarter: 2013Q4

REPORT INFORMATION
  Report Type: Spontaneous
  Country: JP (occurrence: JP)
  Receive Date: 20130122
  Receipt Date: 20131211
  Transmission Date: 20140711
  Serious: Yes (Death)
  Sender: FDA-Public Use
  Company Number: JP-009507513-1301JPN009267

PATIENT
  Sex: Male
  Weight: 68 kg

DRUGS (4)
  1. ESLAX [Suspect]
     Indication: SUICIDE ATTEMPT
     Dosage: .
     Route: 041
  2. ULTIVA [Concomitant]
     Indication: SUICIDE ATTEMPT
     Dosage: DAILY DOSE UNKNOWN
     Route: 065
  3. DORMICUM (MIDAZOLAM) [Concomitant]
     Indication: SUICIDE ATTEMPT
     Dosage: DAILY DOSE UNKNOWN
     Route: 065
  4. ISOTONIC SODIUM CHLORIDE SOLUTION PL FUSO [Concomitant]
     Indication: SUICIDE ATTEMPT
     Dosage: DAILY DOSE UNKNOWN
     Route: 065

REACTIONS (2)
  - Completed suicide [Fatal]
  - Intentional drug misuse [Unknown]
